FAERS Safety Report 7736895-3 (Version None)
Quarter: 2011Q3

REPORT INFORMATION
  Report Type: 
  Country: None (occurrence: None)
  Receive Date: 20110908
  Receipt Date: 20110830
  Transmission Date: 20111222
  Serious: Yes (Hospitalization, Other)
  Sender: FDA-Public Use
  Company Number: PHFR2011IE03174

PATIENT
  Sex: Female

DRUGS (5)
  1. CLOZAPINE [Suspect]
     Indication: SCHIZOPHRENIA
     Route: 048
     Dates: start: 20051027
  2. CLOZAPINE [Suspect]
     Route: 048
     Dates: start: 20100518
  3. BENZODIAZEPINES [Concomitant]
     Route: 065
  4. PAROXETINE HCL [Concomitant]
     Dosage: 10 MG, UNK
     Route: 065
  5. PAROXETINE HCL [Concomitant]
     Dosage: 20 MG, UNK
     Route: 065

REACTIONS (9)
  - CONFUSIONAL STATE [None]
  - DISORIENTATION [None]
  - LOSS OF CONSCIOUSNESS [None]
  - SOMNOLENCE [None]
  - MYOCARDIAL ISCHAEMIA [None]
  - AGITATION [None]
  - DROOLING [None]
  - HYPERVENTILATION [None]
  - ANTIPSYCHOTIC DRUG LEVEL INCREASED [None]
